FAERS Safety Report 15417186 (Version 1)
Quarter: 2018Q3

REPORT INFORMATION
  Report Type: Report from Study
  Country: DE (occurrence: DE)
  Receive Date: 20180924
  Receipt Date: 20180924
  Transmission Date: 20181010
  Serious: Yes (Congenital Anomaly, Other)
  Sender: FDA-Public Use
  Company Number: DE-AUROBINDO-AUR-APL-2018-047209

PATIENT
  Sex: Male

DRUGS (1)
  1. VALSARTAN. [Suspect]
     Active Substance: VALSARTAN
     Indication: FOETAL EXPOSURE DURING PREGNANCY
     Dosage: 160 MILLIGRAM, ONCE A DAY
     Route: 065

REACTIONS (10)
  - Ductus arteriosus stenosis foetal [Unknown]
  - Inguinal hernia [Unknown]
  - Hypospadias [Unknown]
  - Atrial septal defect [Unknown]
  - Hypoacusis [Unknown]
  - Foetal exposure during pregnancy [Unknown]
  - Ventricular septal defect [Unknown]
  - Premature baby [Unknown]
  - Low birth weight baby [Unknown]
  - Pulmonary valve stenosis congenital [Unknown]
